FAERS Safety Report 12619974 (Version 1)
Quarter: 2016Q3

REPORT INFORMATION
  Report Type: Spontaneous
  Country: US (occurrence: US)
  Receive Date: 20160803
  Receipt Date: 20160803
  Transmission Date: 20161109
  Serious: No
  Sender: FDA-Public Use
  Company Number: US-ENDO PHARMACEUTICALS INC.-2015-003581

PATIENT
  Sex: Male
  Weight: 82.17 kg

DRUGS (2)
  1. TESTOPEL [Suspect]
     Active Substance: TESTOSTERONE
     Indication: HYPOGONADISM
     Dosage: 8 PELLETS INSERTED, 75 MG PER PELLET
     Route: 065
     Dates: start: 20150917
  2. LUPRON [Concomitant]
     Active Substance: LEUPROLIDE ACETATE
     Indication: PROSTATE CANCER

REACTIONS (4)
  - Implant site extravasation [Recovered/Resolved]
  - Implant site infection [Recovered/Resolved]
  - Device expulsion [Unknown]
  - Implant site haemorrhage [Recovered/Resolved]
